FAERS Safety Report 6602488-4 (Version None)
Quarter: 2010Q1

REPORT INFORMATION
  Report Type: 
  Country: None (occurrence: None)
  Receive Date: 20100225
  Receipt Date: 20100217
  Transmission Date: 20100710
  Serious: Yes (Hospitalization)
  Sender: FDA-Public Use
  Company Number: US-JNJFOC-20100210201

PATIENT
  Sex: Male

DRUGS (3)
  1. MOTRIN [Suspect]
     Indication: PAIN
  2. LISINOPRIL [Concomitant]
     Indication: HYPERTENSION
  3. UNKNOWN CHOLESTEROL MEDICATION [Concomitant]
     Indication: BLOOD CHOLESTEROL

REACTIONS (2)
  - COMA [None]
  - HAEMOLYTIC ANAEMIA [None]
